FAERS Safety Report 4539064-3 (Version None)
Quarter: 2004Q4

REPORT INFORMATION
  Report Type: 
  Country: None (occurrence: None)
  Receive Date: 20041222
  Receipt Date: 20041215
  Transmission Date: 20050328
  Serious: Yes (Hospitalization)
  Sender: FDA-Public Use
  Company Number: SUSI-2004-00864

PATIENT
  Age: 45 Year
  Sex: Male

DRUGS (1)
  1. ADDERALL XR 10 [Suspect]
     Indication: ATTENTION DEFICIT/HYPERACTIVITY DISORDER
     Dates: start: 20030101, end: 20041216

REACTIONS (5)
  - CONVULSION [None]
  - HEADACHE [None]
  - PERSONALITY CHANGE [None]
  - PSYCHOTIC DISORDER [None]
  - VOMITING [None]
